FAERS Safety Report 7055210-4 (Version None)
Quarter: 2010Q4

REPORT INFORMATION
  Report Type: 
  Country: None (occurrence: None)
  Receive Date: 20101021
  Receipt Date: 20101007
  Transmission Date: 20110411
  Serious: Yes (Hospitalization)
  Sender: FDA-Public Use
  Company Number: ES-RANBAXY-2010RR-36157

PATIENT
  Age: 75 Year
  Sex: Female

DRUGS (2)
  1. DOXYCYCLINE [Suspect]
     Indication: MYCOBACTERIUM FORTUITUM INFECTION
     Dosage: 20 MG, UNK
     Route: 048
  2. LEVOFLOXACIN [Concomitant]
     Indication: MYCOBACTERIUM FORTUITUM INFECTION
     Dosage: 500 MG, UNK
     Route: 048
     Dates: start: 20080401

REACTIONS (1)
  - PANCREATITIS ACUTE [None]
